FAERS Safety Report 5291120-0 (Version None)
Quarter: 2007Q2

REPORT INFORMATION
  Report Type: 
  Country: None (occurrence: None)
  Receive Date: 20070402
  Receipt Date: 20070320
  Transmission Date: 20071010
  Serious: Yes (Other)
  Sender: FDA-Public Use
  Company Number: 2007-00663

PATIENT
  Age: 66 Year
  Sex: Male

DRUGS (9)
  1. VELCADE [Suspect]
     Indication: MULTIPLE MYELOMA
     Dosage: 1.30 MG/M2, UNK, INTRAVENOUS
     Route: 042
     Dates: start: 20050509, end: 20050916
  2. SIMVASTATIN [Concomitant]
  3. NORVASC [Concomitant]
  4. ASPIRIN [Concomitant]
  5. COVERSYL PLUS (INDAPAMIDE, PERINDOPRIL ERBUMINE) [Concomitant]
  6. CIPRO [Concomitant]
  7. COLOXYL (DOCUSATE SODIUM) [Concomitant]
  8. SENNA (SENNA) [Concomitant]
  9. ACETAMINOPHEN [Concomitant]

REACTIONS (2)
  - COLON CANCER [None]
  - HEPATIC CANCER METASTATIC [None]
